FAERS Safety Report 11358954 (Version 1)
Quarter: 2015Q3

REPORT INFORMATION
  Report Type: Spontaneous
  Country: US (occurrence: None)
  Receive Date: 20150807
  Receipt Date: 20150807
  Transmission Date: 20151125
  Serious: Yes (Other)
  Sender: FDA-Public Use
  Company Number: None

PATIENT
  Age: 66 Year
  Sex: Male
  Weight: 68.04 kg

DRUGS (1)
  1. TEMAZEPAM. [Suspect]
     Active Substance: TEMAZEPAM
     Indication: SLEEP DISORDER THERAPY
     Dates: start: 20140916, end: 20150110

REACTIONS (5)
  - Blood urine present [None]
  - Mood swings [None]
  - Anxiety [None]
  - Faeces discoloured [None]
  - Drug ineffective [None]

NARRATIVE: CASE EVENT DATE: 20150109
